FAERS Safety Report 25869414 (Version 1)
Quarter: 2025Q4

REPORT INFORMATION
  Report Type: Spontaneous
  Country: CA (occurrence: CA)
  Receive Date: 20251001
  Receipt Date: 20251001
  Transmission Date: 20260117
  Serious: Yes (Other)
  Sender: PFIZER
  Company Number: CA-PFIZER INC-202500193765

PATIENT
  Age: 47 Year
  Sex: Female

DRUGS (3)
  1. RUXIENCE [Suspect]
     Active Substance: RITUXIMAB-PVVR
     Indication: Granulomatosis with polyangiitis
     Dosage: 600 MG, WEEKLY, X 4 WEEKS
     Route: 042
     Dates: start: 20240311, end: 20240401
  2. RUXIENCE [Suspect]
     Active Substance: RITUXIMAB-PVVR
     Dosage: 1 G, EVERY 6 MONTHS
     Route: 042
     Dates: start: 20241004
  3. RUXIENCE [Suspect]
     Active Substance: RITUXIMAB-PVVR
     Dosage: 1 G, EVERY 6 MONTHS
     Route: 042
     Dates: start: 20250415

REACTIONS (1)
  - Pericarditis [Unknown]
